FAERS Safety Report 4716282-2 (Version None)
Quarter: 2005Q2

REPORT INFORMATION
  Report Type: 
  Country: None (occurrence: None)
  Receive Date: 20050630
  Receipt Date: 20050131
  Transmission Date: 20051028
  Serious: Yes (Hospitalization)
  Sender: FDA-Public Use
  Company Number: US_0502111840

PATIENT
  Age: 73 Year
  Sex: Male

DRUGS (1)
  1. HUMALOG MIX 75/25 [Suspect]
     Indication: DIABETES MELLITUS
     Dosage: 96 U DAY

REACTIONS (3)
  - BALANCE DISORDER [None]
  - FALL [None]
  - RIB FRACTURE [None]
